FAERS Safety Report 9019582 (Version 1)
Quarter: 2013Q1

REPORT INFORMATION
  Report Type: Spontaneous
  Country: EC (occurrence: EC)
  Receive Date: 20130118
  Receipt Date: 20130118
  Transmission Date: 20140127
  Serious: Yes (Other)
  Sender: FDA-Public Use
  Company Number: PHHY2013EC004577

PATIENT
  Sex: Female

DRUGS (2)
  1. STALEVO [Suspect]
     Indication: PARKINSON^S DISEASE
     Dosage: 100/25/200MG
     Route: 048
     Dates: start: 2011
  2. EXFORGE [Suspect]
     Dosage: 5/160MG
     Route: 048
     Dates: start: 201206

REACTIONS (2)
  - Hand fracture [Unknown]
  - Fall [Unknown]
